FAERS Safety Report 9051613 (Version 2)
Quarter: 2013Q2

REPORT INFORMATION
  Report Type: Spontaneous
  Country: US (occurrence: US)
  Receive Date: 20130207
  Receipt Date: 20130418
  Transmission Date: 20140414
  Serious: No
  Sender: FDA-Public Use
  Company Number: US-BIOGENIDEC-2013BI009383

PATIENT
  Sex: Female

DRUGS (3)
  1. TYSABRI [Suspect]
     Indication: MULTIPLE SCLEROSIS
     Route: 042
     Dates: start: 20090407
  2. POTASSIUM SUPPLEMENT [Concomitant]
     Indication: MINERAL SUPPLEMENTATION
  3. FLU SHOT [Concomitant]
     Indication: ANTIVIRAL PROPHYLAXIS

REACTIONS (12)
  - Gastric disorder [Unknown]
  - Diarrhoea [Recovered/Resolved]
  - Blood potassium decreased [Unknown]
  - Gait disturbance [Unknown]
  - Asthenia [Unknown]
  - Nausea [Unknown]
  - Vomiting [Recovered/Resolved]
  - Stress [Unknown]
  - Vaccination complication [Recovered/Resolved]
  - Mental impairment [Not Recovered/Not Resolved]
  - Alopecia [Not Recovered/Not Resolved]
  - Fatigue [Recovered/Resolved]
